FAERS Safety Report 7691918-5 (Version None)
Quarter: 2011Q3

REPORT INFORMATION
  Report Type: 
  Country: None (occurrence: None)
  Receive Date: 20110818
  Receipt Date: 20110811
  Transmission Date: 20111222
  Serious: Yes (Hospitalization, Other)
  Sender: FDA-Public Use
  Company Number: US-BAYER-201037622NA

PATIENT
  Age: 34 Year
  Sex: Female

DRUGS (5)
  1. PRISTIQ [Concomitant]
     Dosage: UNK
     Dates: start: 20090101
  2. DROSPIRENONE AND ETHINYL ESTRADIOL [Suspect]
     Indication: PRODUCT USED FOR UNKNOWN INDICATION
     Dosage: UNK
     Route: 048
     Dates: start: 20080601, end: 20091201
  3. PRISTIQ [Concomitant]
     Indication: DEPRESSION
     Dosage: UNK
     Dates: start: 20080801, end: 20090201
  4. LEXAPRO [Concomitant]
     Indication: DEPRESSION
     Dosage: UNK
     Dates: start: 20080601, end: 20080701
  5. YASMIN [Suspect]
     Indication: CONTRACEPTION
     Dosage: UNK
     Dates: start: 20080601, end: 20091201

REACTIONS (4)
  - CHOLECYSTITIS CHRONIC [None]
  - PAIN [None]
  - CHOLELITHIASIS [None]
  - GALLBLADDER DISORDER [None]
